FAERS Safety Report 24619429 (Version 1)
Quarter: 2024Q4

REPORT INFORMATION
  Report Type: Spontaneous
  Country: US (occurrence: US)
  Receive Date: 20241114
  Receipt Date: 20241114
  Transmission Date: 20250114
  Serious: No
  Sender: CIPLA
  Company Number: US-CIPLA LTD.-2024US07311

PATIENT

DRUGS (8)
  1. GABAPENTIN [Suspect]
     Active Substance: GABAPENTIN
     Indication: Headache
     Dosage: 300 MILLIGRAM, PRN (PRESCRIBED 100 MG THREE TIMES NIGHTLY AS NEEDED)
     Route: 048
  2. GABAPENTIN [Suspect]
     Active Substance: GABAPENTIN
     Dosage: UNK (TOOK THIS MEDICATION ONCE OR TWICE NIGHTLY)
     Route: 048
  3. AMLODIPINE [Concomitant]
     Active Substance: AMLODIPINE BESYLATE
     Indication: Hypertension
     Dosage: 2.5 MILLIGRAM, QD
     Route: 065
  4. ATENOLOL [Concomitant]
     Active Substance: ATENOLOL
     Indication: Hypertension
     Dosage: 25 MILLIGRAM, QD
     Route: 065
  5. EZETIMIBE [Concomitant]
     Active Substance: EZETIMIBE
     Indication: Blood cholesterol
     Dosage: 10 MILLIGRAM, QD
     Route: 065
  6. SIMVASTATIN [Concomitant]
     Active Substance: SIMVASTATIN
     Indication: Blood cholesterol
     Dosage: 10 MILLIGRAM, QD
     Route: 065
  7. ELIQUIS [Concomitant]
     Active Substance: APIXABAN
     Indication: Coagulopathy
     Dosage: 5 MILLIGRAM, BID (MORNING AND EVENING) (TAKEN THIS MEDICATION QUITE FOR SOMETIME)
     Route: 065
  8. TYLENOL [Concomitant]
     Active Substance: ACETAMINOPHEN
     Indication: Headache
     Dosage: UNK
     Route: 065

REACTIONS (3)
  - Off label use [Unknown]
  - Intentional product use issue [Unknown]
  - Headache [Not Recovered/Not Resolved]

NARRATIVE: CASE EVENT DATE: 20240704
